FAERS Safety Report 9338221 (Version 1)
Quarter: 2013Q2

REPORT INFORMATION
  Report Type: Spontaneous
  Country: US (occurrence: None)
  Receive Date: 20130605
  Receipt Date: 20130605
  Transmission Date: 20140414
  Serious: Yes (Death)
  Sender: FDA-Public Use
  Company Number: None

PATIENT
  Sex: 0

DRUGS (1)
  1. SCOPE WHITE MOUTHWASH, MINT SPLASH FLAVOR(ETHANOL 5.0%, HYDROGEN PEROXIDE 1.5%) LIQUID, 15ML [Suspect]

REACTIONS (4)
  - Poisoning deliberate [None]
  - Product tampering [None]
  - Product colour issue [None]
  - Victim of homicide [None]
